FAERS Safety Report 12973533 (Version 2)
Quarter: 2017Q2

REPORT INFORMATION
  Report Type: Spontaneous
  Country: US (occurrence: US)
  Receive Date: 20161124
  Receipt Date: 20170420
  Transmission Date: 20170830
  Serious: No
  Sender: FDA-Public Use
  Company Number: US-TEVA-673364USA

PATIENT
  Age: 86 Year
  Sex: Male
  Weight: 60.84 kg

DRUGS (2)
  1. PRAVASTATIN. [Suspect]
     Active Substance: PRAVASTATIN
     Route: 048
     Dates: start: 20160310
  2. PRAVASTATIN. [Suspect]
     Active Substance: PRAVASTATIN
     Route: 048

REACTIONS (2)
  - Dysgeusia [Unknown]
  - Hypoaesthesia [Unknown]

NARRATIVE: CASE EVENT DATE: 201605
